FAERS Safety Report 7352055-2 (Version None)
Quarter: 2011Q1

REPORT INFORMATION
  Report Type: 
  Country: None (occurrence: None)
  Receive Date: 20110304
  Receipt Date: 20090701
  Transmission Date: 20110831
  Serious: Yes (Hospitalization)
  Sender: FDA-Public Use
  Company Number: UK-2009-00205

PATIENT
  Age: 74 Year
  Sex: Female

DRUGS (4)
  1. SIMVASTATIN [Suspect]
     Indication: HYPERCHOLESTEROLAEMIA
     Dosage: 40 MG (40 MG,), ORAL
     Route: 048
     Dates: start: 20090401, end: 20090613
  2. HYDROCORTISONE [Concomitant]
  3. SOMATROPIN [Concomitant]
  4. LEVOTHYROXINE SODIUM [Concomitant]

REACTIONS (2)
  - SEPSIS [None]
  - RHABDOMYOLYSIS [None]
